FAERS Safety Report 7721173-9 (Version None)
Quarter: 2011Q3

REPORT INFORMATION
  Report Type: 
  Country: None (occurrence: None)
  Receive Date: 20110830
  Receipt Date: 20110830
  Transmission Date: 20111222
  Serious: Yes (Hospitalization, Disabling)
  Sender: FDA-Public Use
  Company Number: None

PATIENT
  Age: 61 Year
  Sex: Male
  Weight: 75 kg

DRUGS (1)
  1. SOLU-MEDROL [Suspect]
     Indication: SPINAL CORD DISORDER
     Dosage: 1000MG SOLU-MEDROL ONCE I.V. AT 3:30PM
     Route: 042
     Dates: start: 20110103

REACTIONS (9)
  - PARAESTHESIA [None]
  - COORDINATION ABNORMAL [None]
  - ANORECTAL DISCOMFORT [None]
  - PAIN [None]
  - INFREQUENT BOWEL MOVEMENTS [None]
  - HYPERAESTHESIA [None]
  - ANURIA [None]
  - CONSTIPATION [None]
  - MUSCLE SPASMS [None]
